FAERS Safety Report 21772830 (Version 1)
Quarter: 2022Q4

REPORT INFORMATION
  Report Type: Spontaneous
  Country: JP (occurrence: JP)
  Receive Date: 20221223
  Receipt Date: 20221223
  Transmission Date: 20230112
  Serious: Yes (Hospitalization, Other)
  Sender: FDA-Public Use
  Company Number: JP-GLAXOSMITHKLINE-JP2022JPN189902

PATIENT

DRUGS (2)
  1. VALTREX [Suspect]
     Active Substance: VALACYCLOVIR HYDROCHLORIDE
     Indication: Optic neuritis
     Dosage: UNK
     Route: 048
  2. VALTREX [Suspect]
     Active Substance: VALACYCLOVIR HYDROCHLORIDE
     Indication: Retinitis viral

REACTIONS (5)
  - Pulmonary alveolar haemorrhage [Unknown]
  - Legionella infection [Unknown]
  - Pneumonia [Unknown]
  - Dyspnoea [Unknown]
  - Product use in unapproved indication [Unknown]
